FAERS Safety Report 6361168-3 (Version None)
Quarter: 2009Q3

REPORT INFORMATION
  Report Type: 
  Country: None (occurrence: None)
  Receive Date: 20090918
  Receipt Date: 20090909
  Transmission Date: 20100115
  Serious: Yes (Hospitalization)
  Sender: FDA-Public Use
  Company Number: FR-BAYER-200931892GPV

PATIENT
  Age: 79 Year
  Sex: Male

DRUGS (13)
  1. ANDROCUR [Suspect]
     Indication: NEOPLASM PROSTATE
     Dosage: TOTAL DAILY DOSE: 200 MG
     Route: 048
     Dates: end: 20090408
  2. CIPROFLOXACIN HCL [Suspect]
     Indication: URINARY TRACT INFECTION
     Dosage: TOTAL DAILY DOSE: 1 DF  UNIT DOSE: 400 MG
     Route: 042
     Dates: start: 20090408, end: 20090413
  3. FUMAFER [Suspect]
     Indication: IRON DEFICIENCY
     Route: 048
     Dates: end: 20090408
  4. LAROXYL [Suspect]
     Indication: DEPRESSION
     Dosage: TOTAL DAILY DOSE: 1 DF  UNIT DOSE: 25 MG
     Route: 048
     Dates: end: 20090408
  5. XANAX [Suspect]
     Indication: ANXIETY
     Dosage: TOTAL DAILY DOSE: 0.25 MG
     Route: 048
     Dates: end: 20090408
  6. CALCIDOSE [Suspect]
     Indication: CALCIUM DEFICIENCY
     Dosage: TOTAL DAILY DOSE: 1 G
     Route: 048
     Dates: end: 20090408
  7. ROCEPHIN [Suspect]
     Indication: URINARY TRACT INFECTION
     Dosage: TOTAL DAILY DOSE: 1 DF  UNIT DOSE: 1 G
     Route: 042
     Dates: start: 20090408, end: 20090410
  8. PRIMPERAN [Suspect]
     Indication: NAUSEA
     Dosage: 2 AMPULES A DAY
     Route: 042
     Dates: start: 20090408, end: 20090413
  9. CALCIPARINE [Suspect]
     Indication: PROPHYLAXIS
     Dosage: TOTAL DAILY DOSE: 0.8 ML
     Route: 042
     Dates: start: 20090408, end: 20090410
  10. NEXIUM [Suspect]
     Indication: PROPHYLAXIS
     Dosage: TOTAL DAILY DOSE: 1 DF
     Route: 048
     Dates: end: 20090426
  11. LASIX [Suspect]
     Indication: DRUG USE FOR UNKNOWN INDICATION
     Dosage: TOTAL DAILY DOSE: 1 DF  UNIT DOSE: 40 MG
     Route: 048
     Dates: end: 20090408
  12. ROVAMYCIN [Suspect]
     Indication: URINARY TRACT INFECTION
     Route: 048
     Dates: start: 20090301, end: 20090408
  13. ACETAMINOPHEN [Suspect]
     Indication: PAIN
     Dosage: TOTAL DAILY DOSE: 4 G
     Route: 042
     Dates: start: 20090408, end: 20090413

REACTIONS (8)
  - DEEP VEIN THROMBOSIS [None]
  - LEUKOCYTOSIS [None]
  - METABOLIC ACIDOSIS [None]
  - OEDEMA PERIPHERAL [None]
  - PYREXIA [None]
  - RENAL FAILURE ACUTE [None]
  - THROMBOCYTOPENIA [None]
  - UROSEPSIS [None]
